FAERS Safety Report 5145757-X (Version None)
Quarter: 2006Q4

REPORT INFORMATION
  Report Type: 
  Country: None (occurrence: None)
  Receive Date: 20060915
  Receipt Date: 20060710
  Transmission Date: 20070319
  Serious: No
  Sender: FDA-Public Use
  Company Number: 2006RL000253

PATIENT
  Age: 41 Year
  Sex: Female
  Weight: 76.2043 kg

DRUGS (5)
  1. OMACOR [Suspect]
     Indication: BLOOD CHOLESTEROL
     Dosage: SEE IMAGE
     Route: 048
     Dates: start: 20000623, end: 20060707
  2. OMACOR [Suspect]
     Indication: BLOOD CHOLESTEROL
     Dosage: SEE IMAGE
     Route: 048
     Dates: start: 20060708
  3. PLAVIX [Concomitant]
  4. TOPROL-XL [Concomitant]
  5. ASPIRIN [Concomitant]

REACTIONS (8)
  - ABDOMINAL DISTENSION [None]
  - ERUCTATION [None]
  - GASTROOESOPHAGEAL REFLUX DISEASE [None]
  - INFLUENZA LIKE ILLNESS [None]
  - NAUSEA [None]
  - OEDEMA PERIPHERAL [None]
  - STOMACH DISCOMFORT [None]
  - VOMITING [None]
